FAERS Safety Report 7062468-4 (Version None)
Quarter: 2010Q4

REPORT INFORMATION
  Report Type: 
  Country: None (occurrence: None)
  Receive Date: 20101026
  Receipt Date: 20091014
  Transmission Date: 20110411
  Serious: No
  Sender: FDA-Public Use
  Company Number: US-PFIZER INC-2009283129

PATIENT
  Sex: Male
  Weight: 86.2 kg

DRUGS (6)
  1. LIPITOR [Suspect]
     Dosage: 20 MG, HS
  2. ENOXAPARIN SODIUM [Suspect]
     Indication: PULMONARY EMBOLISM
     Dosage: 100 MG, 2X/DAY
     Route: 058
     Dates: start: 20090901, end: 20090904
  3. ENOXAPARIN SODIUM [Suspect]
     Indication: INTERNATIONAL NORMALISED RATIO DECREASED
  4. AZOR [Concomitant]
  5. FISH OIL [Concomitant]
  6. TOPROL-XL [Concomitant]

REACTIONS (1)
  - HEPATIC ENZYME INCREASED [None]
